FAERS Safety Report 6608701-1 (Version None)
Quarter: 2010Q1

REPORT INFORMATION
  Report Type: 
  Country: None (occurrence: None)
  Receive Date: 20100223
  Receipt Date: 20100211
  Transmission Date: 20100710
  Serious: Yes (Hospitalization)
  Sender: FDA-Public Use
  Company Number: WAES 1002USA01853

PATIENT

DRUGS (1)
  1. ISENTRESS [Suspect]
     Dosage: 200 MG

REACTIONS (1)
  - MENTAL DISORDER [None]
